FAERS Safety Report 9654718 (Version 2)
Quarter: 2014Q1

REPORT INFORMATION
  Report Type: Spontaneous
  Country: US (occurrence: US)
  Receive Date: 20131029
  Receipt Date: 20140210
  Transmission Date: 20141002
  Serious: No
  Sender: FDA-Public Use
  Company Number: US-B.I. PHARMACEUTICALS,INC./RIDGEFIELD-2013-BI-33305BP

PATIENT
  Age: 72 Year
  Sex: Female
  Weight: 83 kg

DRUGS (12)
  1. SPIRIVA [Suspect]
     Indication: BRONCHITIS CHRONIC
     Dosage: 18 MCG
     Route: 055
     Dates: start: 201308
  2. NITROGLYCERIN [Concomitant]
     Indication: CHEST PAIN
     Dates: start: 2012
  3. TORSEMIDE [Concomitant]
     Indication: OEDEMA PERIPHERAL
     Dosage: 40 MG
     Route: 048
     Dates: start: 20131003
  4. ISOSORBIDE [Concomitant]
     Dosage: 30 MG
     Route: 048
     Dates: start: 2012
  5. GABAPENTIN [Concomitant]
     Indication: NERVE INJURY
     Dosage: 600 MG
     Route: 048
     Dates: start: 2012
  6. PLAVIX [Concomitant]
     Indication: ANTICOAGULANT THERAPY
     Dosage: 75 MG
     Route: 048
     Dates: start: 2011
  7. BISOPROLOL [Concomitant]
     Dosage: 5 MG
     Route: 048
     Dates: start: 2012
  8. ADVAIR HFA [Concomitant]
     Dosage: 4 PUF
     Route: 055
     Dates: start: 201309
  9. VENTOLIN [Concomitant]
     Dosage: 8 PUF
     Route: 055
     Dates: start: 201309
  10. PRAVASTATIN [Concomitant]
     Indication: BLOOD CHOLESTEROL INCREASED
     Dosage: 20 MG
     Route: 048
  11. HYRDOCODONE/APAP [Concomitant]
     Indication: PAIN IN EXTREMITY
     Dosage: STRENGTH: 7.5 MG/500 MG; DAILY DOSE: 15MG/1000MG
     Route: 048
     Dates: start: 2008
  12. HYRDOCODONE/APAP [Concomitant]
     Indication: BACK PAIN

REACTIONS (3)
  - Dyspnoea [Recovered/Resolved]
  - Product quality issue [Recovered/Resolved]
  - Product quality issue [Recovered/Resolved]
